FAERS Safety Report 25846125 (Version 3)
Quarter: 2025Q4

REPORT INFORMATION
  Report Type: Spontaneous
  Country: GB (occurrence: GB)
  Receive Date: 20250925
  Receipt Date: 20251014
  Transmission Date: 20260117
  Serious: Yes (Life-Threatening, Hospitalization)
  Sender: TEVA
  Company Number: GB-RP-046961

PATIENT
  Age: 50 Year
  Sex: Male

DRUGS (2)
  1. WARFARIN [Suspect]
     Active Substance: WARFARIN
     Indication: Anticoagulant therapy
     Route: 048
  2. WARFARIN [Suspect]
     Active Substance: WARFARIN
     Indication: Anticoagulant therapy
     Route: 048

REACTIONS (5)
  - Pharyngeal haematoma [Recovering/Resolving]
  - Obstructive airways disorder [Recovering/Resolving]
  - Nail bed bleeding [Recovering/Resolving]
  - International normalised ratio increased [Unknown]
  - Salivary gland mass [Recovering/Resolving]
